FAERS Safety Report 4690567-0 (Version None)
Quarter: 2005Q2

REPORT INFORMATION
  Report Type: 
  Country: None (occurrence: None)
  Receive Date: 20050614
  Receipt Date: 20050614
  Transmission Date: 20051028
  Serious: No
  Sender: FDA-Public Use
  Company Number: None

PATIENT
  Sex: Female
  Weight: 60 kg

DRUGS (2)
  1. LAMOTRIGINE [Suspect]
     Indication: BIPOLAR I DISORDER
     Dosage: 200MG   DAY   ORAL
     Route: 048
     Dates: start: 20041101, end: 20050319
  2. LAMOTRIGINE [Suspect]
     Indication: DEPRESSION
     Dosage: 200MG   DAY   ORAL
     Route: 048
     Dates: start: 20041101, end: 20050319

REACTIONS (3)
  - ABNORMAL BEHAVIOUR [None]
  - MOVEMENT DISORDER [None]
  - TIC [None]
